FAERS Safety Report 19130704 (Version 3)
Quarter: 2025Q1

REPORT INFORMATION
  Report Type: Spontaneous
  Country: CA (occurrence: CA)
  Receive Date: 20210413
  Receipt Date: 20250214
  Transmission Date: 20250409
  Serious: Yes (Other)
  Sender: BAUSCH AND LOMB
  Company Number: CA-BAUSCH-BL-2021-011866

PATIENT
  Age: 75 Year
  Sex: Male

DRUGS (26)
  1. ALBUTEROL [Suspect]
     Active Substance: ALBUTEROL
     Indication: Asthma
     Route: 065
  2. ALBUTEROL [Suspect]
     Active Substance: ALBUTEROL
     Route: 065
  3. TIOTROPIUM BROMIDE [Suspect]
     Active Substance: TIOTROPIUM BROMIDE
     Indication: Asthma
     Route: 065
  4. TIOTROPIUM BROMIDE [Suspect]
     Active Substance: TIOTROPIUM BROMIDE
     Dosage: TIOTROPIUM BROMIDE MONOHYDRATE
     Route: 065
  5. PREDNISONE [Suspect]
     Active Substance: PREDNISONE
     Indication: Dyspnoea
     Route: 065
  6. PREDNISONE [Suspect]
     Active Substance: PREDNISONE
     Route: 065
  7. PREDNISONE [Suspect]
     Active Substance: PREDNISONE
     Route: 065
  8. PREDNISONE [Suspect]
     Active Substance: PREDNISONE
     Route: 065
  9. PREDNISONE [Suspect]
     Active Substance: PREDNISONE
     Route: 065
  10. PREDNISONE [Suspect]
     Active Substance: PREDNISONE
     Route: 065
  11. PREDNISONE [Suspect]
     Active Substance: PREDNISONE
     Route: 065
  12. PREDNISONE [Suspect]
     Active Substance: PREDNISONE
     Route: 065
  13. MOXIFLOXACIN HYDROCHLORIDE [Suspect]
     Active Substance: MOXIFLOXACIN HYDROCHLORIDE
     Indication: Product used for unknown indication
     Route: 065
  14. BUDESONIDE\FORMOTEROL FUMARATE [Suspect]
     Active Substance: BUDESONIDE\FORMOTEROL FUMARATE
     Indication: Product used for unknown indication
     Route: 055
  15. BUDESONIDE\FORMOTEROL FUMARATE [Suspect]
     Active Substance: BUDESONIDE\FORMOTEROL FUMARATE
     Route: 055
  16. BUDESONIDE\FORMOTEROL FUMARATE [Suspect]
     Active Substance: BUDESONIDE\FORMOTEROL FUMARATE
     Route: 055
  17. BREO ELLIPTA [Suspect]
     Active Substance: FLUTICASONE FUROATE\VILANTEROL TRIFENATATE
     Indication: Product used for unknown indication
     Route: 055
  18. AZITHROMYCIN ANHYDROUS [Suspect]
     Active Substance: AZITHROMYCIN ANHYDROUS
     Indication: Product used for unknown indication
     Route: 065
  19. AZITHROMYCIN ANHYDROUS [Suspect]
     Active Substance: AZITHROMYCIN ANHYDROUS
     Dosage: AZITHROMYCIN
     Route: 065
  20. LEVAQUIN [Suspect]
     Active Substance: LEVOFLOXACIN
     Indication: Product used for unknown indication
     Route: 065
  21. AMOXICILLIN\CLAVULANATE POTASSIUM [Suspect]
     Active Substance: AMOXICILLIN\CLAVULANATE POTASSIUM
     Indication: Product used for unknown indication
     Route: 065
  22. SPIRIVA [Suspect]
     Active Substance: TIOTROPIUM BROMIDE MONOHYDRATE
     Indication: Asthma
     Dosage: NOT SPECIFIED
     Route: 065
  23. SPIRIVA [Suspect]
     Active Substance: TIOTROPIUM BROMIDE MONOHYDRATE
     Route: 065
  24. SYMBICORT [Suspect]
     Active Substance: BUDESONIDE\FORMOTEROL FUMARATE DIHYDRATE
     Indication: Product used for unknown indication
     Route: 055
  25. SYMBICORT [Suspect]
     Active Substance: BUDESONIDE\FORMOTEROL FUMARATE DIHYDRATE
     Route: 055
  26. SYMBICORT [Suspect]
     Active Substance: BUDESONIDE\FORMOTEROL FUMARATE DIHYDRATE
     Route: 055

REACTIONS (29)
  - Asthma [Unknown]
  - Chronic obstructive pulmonary disease [Unknown]
  - Dyspnoea [Unknown]
  - FEV1/FVC ratio abnormal [Unknown]
  - Haemoglobin decreased [Unknown]
  - Haemoptysis [Unknown]
  - Hilar lymphadenopathy [Unknown]
  - Liver disorder [Unknown]
  - Loss of personal independence in daily activities [Unknown]
  - Lung diffusion disorder [Unknown]
  - Lung hyperinflation [Unknown]
  - Lung neoplasm malignant [Unknown]
  - Lymphadenopathy mediastinal [Unknown]
  - Obstructive airways disorder [Unknown]
  - Productive cough [Unknown]
  - Pulmonary cavitation [Unknown]
  - Pulmonary fibrosis [Unknown]
  - Pulmonary mass [Unknown]
  - Respiratory gas exchange disorder [Unknown]
  - Sleep disorder due to a general medical condition [Unknown]
  - Full blood count abnormal [Unknown]
  - Cough [Unknown]
  - Wheezing [Unknown]
  - Chest pain [Unknown]
  - Lung disorder [Unknown]
  - Heart rate decreased [Unknown]
  - Blood pressure increased [Unknown]
  - Middle insomnia [Unknown]
  - Therapeutic product effect incomplete [Unknown]
